FAERS Safety Report 16308246 (Version 4)
Quarter: 2019Q2

REPORT INFORMATION
  Report Type: Spontaneous
  Country: FR (occurrence: FR)
  Receive Date: 20190514
  Receipt Date: 20190607
  Transmission Date: 20190711
  Serious: Yes (Life-Threatening, Hospitalization)
  Sender: FDA-Public Use
  Company Number: PHHY2019FR108592

PATIENT
  Age: 39 Year
  Sex: Female

DRUGS (7)
  1. QUETIAPINE. [Suspect]
     Active Substance: QUETIAPINE
     Indication: MAJOR DEPRESSION
     Dosage: 4 G, UNK
     Route: 048
  2. VALPROATE SODIUM. [Suspect]
     Active Substance: VALPROATE SODIUM
     Indication: TOXICITY TO VARIOUS AGENTS
     Dosage: 19 G, UNK
     Route: 048
  3. PROPANOLOL [Suspect]
     Active Substance: PROPRANOLOL HYDROCHLORIDE
     Indication: TOXICITY TO VARIOUS AGENTS
     Dosage: 400 MG, QD
     Route: 048
  4. VALPROATE SODIUM. [Suspect]
     Active Substance: VALPROATE SODIUM
     Dosage: 18.5 G, UNK
     Route: 065
  5. QUETIAPINE. [Suspect]
     Active Substance: QUETIAPINE
     Indication: TOXICITY TO VARIOUS AGENTS
  6. DIAZEPAM. [Suspect]
     Active Substance: DIAZEPAM
     Indication: TOXICITY TO VARIOUS AGENTS
     Dosage: 100 MG, UNK
     Route: 048
  7. ALPRAZOLAM. [Suspect]
     Active Substance: ALPRAZOLAM
     Indication: TOXICITY TO VARIOUS AGENTS
     Dosage: 20 MG, UNK
     Route: 048

REACTIONS (9)
  - Sinus rhythm [Unknown]
  - Intentional overdose [Unknown]
  - Coma [Recovering/Resolving]
  - Heart rate decreased [Unknown]
  - Blood creatine phosphokinase increased [Unknown]
  - Blood pressure systolic decreased [Unknown]
  - Product use issue [Unknown]
  - Lung disorder [Unknown]
  - Toxicity to various agents [Unknown]
